FAERS Safety Report 26116083 (Version 1)
Quarter: 2025Q4

REPORT INFORMATION
  Report Type: Spontaneous
  Country: CA (occurrence: CA)
  Receive Date: 20251203
  Receipt Date: 20251203
  Transmission Date: 20260117
  Serious: Yes (Hospitalization, Other)
  Sender: AUROBINDO
  Company Number: CA-AUROBINDO-AUR-APL-2025-060700

PATIENT
  Age: 56 Year
  Sex: Male

DRUGS (1)
  1. ERTAPENEM [Suspect]
     Active Substance: ERTAPENEM
     Indication: Product used for unknown indication
     Dosage: UNK

REACTIONS (5)
  - Renal impairment [Unknown]
  - Asthenia [Unknown]
  - Blood creatinine decreased [Unknown]
  - Dizziness [Unknown]
  - Fall [Unknown]
